FAERS Safety Report 8362271-9 (Version None)
Quarter: 2012Q2

REPORT INFORMATION
  Report Type: 
  Country: None (occurrence: None)
  Receive Date: 20120515
  Receipt Date: 20120503
  Transmission Date: 20120825
  Serious: Yes (Hospitalization, Other)
  Sender: FDA-Public Use
  Company Number: US-ELI_LILLY_AND_COMPANY-US201204006608

PATIENT
  Sex: Female

DRUGS (24)
  1. RANEXA [Concomitant]
  2. NEXIUM [Concomitant]
  3. ZAROXOLYN [Concomitant]
  4. ZANAFLEX [Concomitant]
  5. TOPAMAX [Concomitant]
  6. ULORIC [Concomitant]
  7. ZOLOFT [Concomitant]
  8. ZOCOR [Concomitant]
  9. ALDACTONE [Concomitant]
  10. DEMEX [Concomitant]
  11. FORTEO [Suspect]
     Indication: OSTEOPOROSIS
     Dosage: 20 UG, QD
     Dates: start: 20120424
  12. HYDROXYZINE [Concomitant]
  13. PRIMIDONE [Concomitant]
  14. LASIX [Concomitant]
  15. POTASSIUM CHLORIDE [Concomitant]
  16. HYDROCODONE BITARTRATE [Concomitant]
  17. FORTEO [Suspect]
     Dosage: 20 UG, QD
     Dates: end: 20120426
  18. PROVENTIL                          /00139501/ [Concomitant]
  19. OXYGEN [Concomitant]
     Dosage: 2 L, UNK
  20. NITROGLYCERIN [Concomitant]
     Dosage: UNK, PRN
  21. VESICARE [Concomitant]
  22. VITAMIN B6 [Concomitant]
  23. SPIRIVA [Concomitant]
  24. ALBUTEROL [Concomitant]

REACTIONS (14)
  - FORMICATION [None]
  - FEELING ABNORMAL [None]
  - SKIN INJURY [None]
  - INJECTION SITE URTICARIA [None]
  - VOMITING [None]
  - BACK INJURY [None]
  - INCORRECT STORAGE OF DRUG [None]
  - FALL [None]
  - UPPER LIMB FRACTURE [None]
  - PRURITUS [None]
  - INJECTION SITE RASH [None]
  - RASH [None]
  - INJECTION SITE ERYTHEMA [None]
  - DIZZINESS [None]
